FAERS Safety Report 14846925 (Version 1)
Quarter: 2018Q2

REPORT INFORMATION
  Report Type: Spontaneous
  Country: BR (occurrence: BR)
  Receive Date: 20180504
  Receipt Date: 20180504
  Transmission Date: 20180711
  Serious: Yes (Death, Other)
  Sender: FDA-Public Use
  Company Number: BR-AMGEN-BRASP2018060272

PATIENT
  Age: 57 Year
  Sex: Male

DRUGS (4)
  1. ENBREL [Suspect]
     Active Substance: ETANERCEPT
     Dosage: UNK UNK, QMO CYCLIC (ONCE A MONTH)
     Route: 065
  2. ENBREL [Suspect]
     Active Substance: ETANERCEPT
     Dosage: UNK
     Route: 065
     Dates: start: 2016
  3. ENBREL [Suspect]
     Active Substance: ETANERCEPT
     Indication: PRODUCT USED FOR UNKNOWN INDICATION
     Dosage: UNK UNK, WEEKLY (ONCE A WEEK)
     Route: 065
     Dates: start: 2010
  4. ENBREL [Suspect]
     Active Substance: ETANERCEPT
     Dosage: UNK UNK, CYCLICAL
     Route: 065

REACTIONS (8)
  - Product use issue [Unknown]
  - Fatigue [Unknown]
  - Depression [Unknown]
  - Influenza [Fatal]
  - Suicidal ideation [Unknown]
  - Depressed mood [Unknown]
  - Tobacco user [Unknown]
  - Dyspnoea [Unknown]
